FAERS Safety Report 6462566-X (Version None)
Quarter: 2009Q4

REPORT INFORMATION
  Report Type: 
  Country: None (occurrence: None)
  Receive Date: 20091124
  Receipt Date: 20091117
  Transmission Date: 20100525
  Serious: Yes (Death, Hospitalization)
  Sender: FDA-Public Use
  Company Number: 1-20662425

PATIENT
  Age: 71 Year
  Sex: Female
  Weight: 63.3675 kg

DRUGS (10)
  1. FENTANYL-75 [Suspect]
     Indication: PAIN
     Dosage: 75 MCG/HR EVERY 72 HR, TRANSDERMAL
     Route: 062
     Dates: end: 20091112
  2. LIDODERM [Concomitant]
  3. ENALAPRIL [Concomitant]
  4. FUROSEMIDE [Concomitant]
  5. LORTAB [Concomitant]
  6. LORAZEPAM [Concomitant]
  7. THEOPHYLLINE [Concomitant]
  8. POTASSIUM CHLORIDE [Concomitant]
  9. AZITHROMYCIN [Concomitant]
  10. ROCEPHIN [Concomitant]

REACTIONS (3)
  - HYPOVENTILATION [None]
  - INCORRECT DOSE ADMINISTERED [None]
  - PRODUCT COLOUR ISSUE [None]
